FAERS Safety Report 21271470 (Version 1)
Quarter: 2022Q3

REPORT INFORMATION
  Report Type: Spontaneous
  Country: GB (occurrence: GB)
  Receive Date: 20220830
  Receipt Date: 20220830
  Transmission Date: 20221027
  Serious: Yes (Other)
  Sender: FDA-Public Use
  Company Number: GB-GLAXOSMITHKLINE-GB2022GSK124457

PATIENT

DRUGS (2)
  1. VALACYCLOVIR HYDROCHLORIDE [Suspect]
     Active Substance: VALACYCLOVIR HYDROCHLORIDE
     Indication: Cytomegalovirus infection
     Dosage: 8 G, 1D  (GIVEN IN FOUR DIVIDED DOSES)
     Route: 064
  2. VALGANCICLOVIR [Suspect]
     Active Substance: VALGANCICLOVIR
     Indication: Cytomegalovirus infection
     Dosage: 900 MG, BID
     Route: 064

REACTIONS (8)
  - Ascites [Unknown]
  - Cardiomegaly [Unknown]
  - Gastrointestinal sounds abnormal [Unknown]
  - Giant cell arteritis [Unknown]
  - Congenital cytomegalovirus infection [Unknown]
  - Cerebellar hypoplasia [Unknown]
  - Myocarditis [Unknown]
  - Foetal exposure during pregnancy [Unknown]
